FAERS Safety Report 11828394 (Version 3)
Quarter: 2015Q4

REPORT INFORMATION
  Report Type: Spontaneous
  Country: GB (occurrence: GB)
  Receive Date: 20151211
  Receipt Date: 20151229
  Transmission Date: 20160305
  Serious: Yes (Hospitalization)
  Sender: FDA-Public Use
  Company Number: GB-VERTEX PHARMACEUTICALS-2015-005651

PATIENT
  Age: 10 Year
  Sex: Female

DRUGS (6)
  1. FLUCLOXACILLIN [Concomitant]
     Active Substance: FLUCLOXACILLIN
  2. VITAMINS [Concomitant]
     Active Substance: VITAMINS
  3. VITAMIN E [Concomitant]
     Active Substance: .ALPHA.-TOCOPHEROL
  4. OMEPRAZOLE. [Concomitant]
     Active Substance: OMEPRAZOLE
  5. VITAMIN K [Concomitant]
     Active Substance: PHYTONADIONE
  6. KALYDECO [Suspect]
     Active Substance: IVACAFTOR
     Indication: CYSTIC FIBROSIS
     Dosage: 150 MG, BID
     Route: 048
     Dates: start: 20130326, end: 20151204

REACTIONS (3)
  - Urinary retention [Recovering/Resolving]
  - Chest pain [Unknown]
  - Myelitis transverse [Recovering/Resolving]

NARRATIVE: CASE EVENT DATE: 20151204
